FAERS Safety Report 5194698-0 (Version None)
Quarter: 2006Q4

REPORT INFORMATION
  Report Type: 
  Country: None (occurrence: None)
  Receive Date: 20061229
  Receipt Date: 20060320
  Transmission Date: 20070319
  Serious: Yes (Hospitalization, Other)
  Sender: FDA-Public Use
  Company Number: PHEH2006US03678

PATIENT
  Age: 72 Year
  Sex: Male
  Weight: 68.027 kg

DRUGS (12)
  1. ZOMETA [Suspect]
     Indication: PROSTATE CANCER
     Dosage: 4MG ONCE
     Dates: start: 20060104, end: 20060104
  2. WELLBUTRIN [Concomitant]
     Dosage: 200 MG, EVERY AM
  3. ADVAIR DISKUS 100/50 [Concomitant]
     Dosage: 250/50 MG, ONE PUFF TWICE DAILY
  4. INFLUENZA VACCINE [Concomitant]
  5. FAMOTIDINE [Concomitant]
     Dosage: 10MG QHS
  6. SALMETEROL [Concomitant]
     Dosage: 2 PUFFS BID
  7. FLUTICASONE PROPIONATE [Concomitant]
     Dosage: 2 PUFFS BID
  8. HYZAAR [Concomitant]
  9. LEUPROLIDE ACETATE [Concomitant]
     Dosage: 7.5MG QMO
  10. ASPIRIN [Concomitant]
     Dosage: 81MG QD
  11. CALCIUM W/VITAMIN D NOS [Concomitant]
  12. VITAMIN CAP [Concomitant]

REACTIONS (31)
  - ABDOMINAL PAIN [None]
  - ANGIOPLASTY [None]
  - ASTHENIA [None]
  - AUTOIMMUNE DISORDER [None]
  - CROHN'S DISEASE [None]
  - DECREASED APPETITE [None]
  - DEHYDRATION [None]
  - DIARRHOEA [None]
  - DIZZINESS [None]
  - DUODENAL ULCER [None]
  - FAILURE TO THRIVE [None]
  - FATIGUE [None]
  - GASTROINTESTINAL ULCER HAEMORRHAGE [None]
  - HAEMOGLOBIN DECREASED [None]
  - HYPONATRAEMIA [None]
  - HYPOTENSION [None]
  - INFLAMMATORY BOWEL DISEASE [None]
  - JOINT SWELLING [None]
  - LEUKOCYTOSIS [None]
  - MALNUTRITION [None]
  - METABOLIC ACIDOSIS [None]
  - NAUSEA [None]
  - OCCULT BLOOD POSITIVE [None]
  - PITTING OEDEMA [None]
  - PYREXIA [None]
  - RETCHING [None]
  - SHIFT TO THE LEFT [None]
  - THROMBOPHLEBITIS SUPERFICIAL [None]
  - THROMBOSIS [None]
  - VOMITING [None]
  - WEIGHT DECREASED [None]
